FAERS Safety Report 10725018 (Version 3)
Quarter: 2015Q1

REPORT INFORMATION
  Report Type: Spontaneous
  Country: US (occurrence: US)
  Receive Date: 20150120
  Receipt Date: 20150304
  Transmission Date: 20150721
  Serious: Yes (Hospitalization, Other)
  Sender: FDA-Public Use
  Company Number: US-PFIZER INC-2015019979

PATIENT
  Age: 59 Year
  Sex: Female

DRUGS (12)
  1. AMITRIPTYLINE [Concomitant]
     Active Substance: AMITRIPTYLINE
     Dosage: 25 MG, DAILY
     Route: 048
     Dates: start: 2010
  2. ISOSORBIDE [Concomitant]
     Active Substance: ISOSORBIDE
     Dosage: 30 MG, 1X/DAY
     Route: 048
     Dates: start: 2012
  3. CARVEDILOL. [Concomitant]
     Active Substance: CARVEDILOL
     Dosage: 12.5 MG, 2X/DAY
     Route: 048
     Dates: start: 2012
  4. LEVOTHYROXINE [Concomitant]
     Active Substance: LEVOTHYROXINE
     Dosage: 50 ?G, 1X/DAY
     Route: 048
     Dates: start: 2011
  5. LYRICA [Suspect]
     Active Substance: PREGABALIN
     Indication: PAIN IN EXTREMITY
     Dosage: 75 MG, 1X/DAY
     Route: 048
     Dates: start: 2014
  6. LISINOPRIL. [Concomitant]
     Active Substance: LISINOPRIL
     Dosage: 2.5 DF, 1X/DAY
     Route: 048
     Dates: start: 2012
  7. VENTOLIN HFA [Concomitant]
     Active Substance: ALBUTEROL SULFATE
     Dosage: 2 DF, 2X/DAY (2 PUFFS)
     Dates: start: 201412
  8. LOVASTATIN. [Concomitant]
     Active Substance: LOVASTATIN
     Dosage: 40 MG, DAILY
     Route: 048
     Dates: start: 2013
  9. METFORMIN [Concomitant]
     Active Substance: METFORMIN HYDROCHLORIDE
     Dosage: 1000 MG, 2X/DAY (1000 MG ER PO BID)
     Route: 048
     Dates: start: 2011
  10. ALBUTEROL. [Concomitant]
     Active Substance: ALBUTEROL
     Dosage: 0.083 %, 2X/DAY (0.083 % BID PRN )
     Dates: start: 201412
  11. APIDRA INSULIN [Concomitant]
     Dosage: UNK
     Dates: end: 201501
  12. HUMULIN NOS [Concomitant]
     Active Substance: INSULIN HUMAN
     Dosage: UNK
     Dates: start: 2015

REACTIONS (5)
  - Angina pectoris [Recovered/Resolved]
  - Type 2 diabetes mellitus [Unknown]
  - Hypertension [Unknown]
  - Myocardial infarction [Unknown]
  - Chronic obstructive pulmonary disease [Not Recovered/Not Resolved]

NARRATIVE: CASE EVENT DATE: 2014
